FAERS Safety Report 6278903-5 (Version None)
Quarter: 2009Q3

REPORT INFORMATION
  Report Type: 
  Country: None (occurrence: None)
  Receive Date: 20090723
  Receipt Date: 20070605
  Transmission Date: 20100115
  Serious: Yes (Hospitalization)
  Sender: FDA-Public Use
  Company Number: US-ASTRAZENECA-2006UW04988

PATIENT
  Age: 47 Year
  Sex: Female
  Weight: 69.4 kg

DRUGS (20)
  1. SEROQUEL [Suspect]
     Indication: SCHIZOAFFECTIVE DISORDER
     Dosage: 25 MG TO 100 MG
     Route: 048
     Dates: start: 20011201, end: 20030301
  2. SEROQUEL [Suspect]
     Indication: BIPOLAR DISORDER
     Dosage: 25 MG TO 100 MG
     Route: 048
     Dates: start: 20011201, end: 20030301
  3. SEROQUEL [Suspect]
     Dosage: 25MG-150MG
     Route: 048
     Dates: start: 20011212
  4. SEROQUEL [Suspect]
     Dosage: 25MG-150MG
     Route: 048
     Dates: start: 20011212
  5. ZYPREXA [Suspect]
  6. ABILIFY [Concomitant]
     Dates: start: 20020101, end: 20030101
  7. RISPERDAL [Concomitant]
     Dates: start: 20010101
  8. COMBIVENT [Concomitant]
  9. PREVACID [Concomitant]
  10. ALPRAZOLAM [Concomitant]
  11. SINGULAIR [Concomitant]
  12. ZYRTEC [Concomitant]
  13. TRAMADOL HCL [Concomitant]
  14. CELEXA [Concomitant]
     Indication: SCHIZOPHRENIA
     Dosage: 20MG-40MG
  15. ESTRATEST [Concomitant]
  16. OYSCO-500 [Concomitant]
  17. ATENOLOL [Concomitant]
  18. LAMISIL [Concomitant]
  19. CLOTRIMAZOLE [Concomitant]
  20. BIAXIN XL [Concomitant]

REACTIONS (8)
  - BLOOD CHOLESTEROL INCREASED [None]
  - BLOOD TRIGLYCERIDES INCREASED [None]
  - COLONIC POLYP [None]
  - DIABETES MELLITUS [None]
  - FLANK PAIN [None]
  - HYDRONEPHROSIS [None]
  - INTESTINAL POLYP [None]
  - RENAL DISORDER [None]
